FAERS Safety Report 6330392-8 (Version None)
Quarter: 2009Q3

REPORT INFORMATION
  Report Type: 
  Country: None (occurrence: None)
  Receive Date: 20090827
  Receipt Date: 20090820
  Transmission Date: 20100115
  Serious: Yes (Death, Hospitalization)
  Sender: FDA-Public Use
  Company Number: US-BAYER-200926533NA

PATIENT
  Age: 84 Year
  Sex: Male
  Weight: 73 kg

DRUGS (11)
  1. NEXAVAR [Suspect]
     Indication: HEPATIC NEOPLASM MALIGNANT
     Dosage: TOTAL DAILY DOSE: 400 MG  UNIT DOSE: 200 MG
     Route: 048
     Dates: start: 20090707, end: 20090713
  2. FERROUS SULFATE TAB [Concomitant]
     Dates: start: 20090101
  3. FISH OIL [Concomitant]
     Dates: start: 20020101
  4. FLOMAX [Concomitant]
     Dates: start: 20060101
  5. GABAPENTIN [Concomitant]
     Dates: start: 20090101
  6. GLIMEPIRIDE [Concomitant]
     Dates: start: 20090101
  7. HYDROCHLOROTHIAZIDE [Concomitant]
     Dates: start: 20000101
  8. JUNUVIA [Concomitant]
     Dates: start: 20090315
  9. LISINOPRIL [Concomitant]
     Dates: start: 20000101
  10. METOPROLE [Concomitant]
     Dates: start: 20000101
  11. MULTI-VITAMIN [Concomitant]
     Dates: start: 19800101

REACTIONS (4)
  - ABDOMINAL PAIN [None]
  - CONFUSIONAL STATE [None]
  - DUODENAL ULCER PERFORATION [None]
  - MULTI-ORGAN FAILURE [None]
